FAERS Safety Report 9889651 (Version 1)
Quarter: 2014Q1

REPORT INFORMATION
  Report Type: Report from Study
  Country: ES (occurrence: ES)
  Receive Date: 20140211
  Receipt Date: 20140211
  Transmission Date: 20141002
  Serious: Yes (Other)
  Sender: FDA-Public Use
  Company Number: ES-MYLANLABS-2014S1002443

PATIENT
  Age: 73 Year
  Sex: Female

DRUGS (2)
  1. METFORMIN W/SITAGLIPTIN [Suspect]
     Route: 065
  2. SIMVASTATIN [Suspect]
     Route: 065

REACTIONS (1)
  - Pain in extremity [Recovering/Resolving]
